FAERS Safety Report 15033690 (Version 3)
Quarter: 2018Q3

REPORT INFORMATION
  Report Type: Spontaneous
  Country: JP (occurrence: JP)
  Receive Date: 20180619
  Receipt Date: 20180930
  Transmission Date: 20181010
  Serious: Yes (Hospitalization, Other)
  Sender: FDA-Public Use
  Company Number: JP-BEH-2018091060

PATIENT
  Age: 74 Year
  Sex: Female
  Weight: 65 kg

DRUGS (9)
  1. ALBUMINAR?25 [Suspect]
     Active Substance: ALBUMIN HUMAN
     Indication: BLOOD ALBUMIN DECREASED
     Dosage: 12.5 G (50 ML), TOT
     Route: 041
     Dates: start: 20180524, end: 20180524
  2. ALBUMINAR?25 [Suspect]
     Active Substance: ALBUMIN HUMAN
     Indication: HYPOALBUMINAEMIA
  3. ELIQUIS [Concomitant]
     Active Substance: APIXABAN
     Indication: ATRIAL FIBRILLATION
     Dosage: UNK
     Route: 048
     Dates: start: 20150626
  4. BISOPROLOL FUMARATE. [Concomitant]
     Active Substance: BISOPROLOL FUMARATE
     Indication: ATRIAL FIBRILLATION
     Dosage: UNK
     Route: 048
     Dates: start: 201506
  5. ALBUMINAR?25 [Suspect]
     Active Substance: ALBUMIN HUMAN
     Indication: HYPOVOLAEMIA
  6. ALBUMINAR?25 [Suspect]
     Active Substance: ALBUMIN HUMAN
     Indication: SEPSIS
  7. MAGNESIUM OXIDE. [Concomitant]
     Active Substance: MAGNESIUM OXIDE
     Indication: CONSTIPATION
     Dosage: UNK
     Route: 048
     Dates: start: 201609
  8. TENELIA [Suspect]
     Active Substance: TENELIGLIPTIN
     Dosage: UNK
     Route: 048
     Dates: start: 201804
  9. LANSOPRAZOLE. [Concomitant]
     Active Substance: LANSOPRAZOLE
     Indication: GASTROOESOPHAGEAL REFLUX DISEASE
     Dosage: UNK
     Route: 048
     Dates: start: 201506

REACTIONS (17)
  - Extrasystoles [Recovering/Resolving]
  - Blister [Unknown]
  - Pemphigoid [Unknown]
  - Angioedema [Recovering/Resolving]
  - Hypotension [Unknown]
  - Urticaria [Recovering/Resolving]
  - Erythema [Recovering/Resolving]
  - Feeling hot [Recovering/Resolving]
  - Pruritus [Unknown]
  - Rash [Recovering/Resolving]
  - Pruritus [Not Recovered/Not Resolved]
  - Swelling face [Recovering/Resolving]
  - Oedema peripheral [Unknown]
  - Drug eruption [Recovering/Resolving]
  - Localised oedema [Unknown]
  - Angioedema [Unknown]
  - Varicella [Unknown]

NARRATIVE: CASE EVENT DATE: 201805
